FAERS Safety Report 14346725 (Version 3)
Quarter: 2018Q1

REPORT INFORMATION
  Report Type: Spontaneous
  Country: US (occurrence: US)
  Receive Date: 20180103
  Receipt Date: 20180306
  Transmission Date: 20180509
  Serious: No
  Sender: FDA-Public Use
  Company Number: US-ACTELION-A-NJ2017-164917

PATIENT
  Age: 81 Year
  Sex: Male

DRUGS (2)
  1. BEXAROTENE. [Concomitant]
     Active Substance: BEXAROTENE
  2. VALCHLOR [Suspect]
     Active Substance: MECHLORETHAMINE
     Indication: MYCOSIS FUNGOIDES
     Dosage: UNK
     Route: 061
     Dates: start: 20171003

REACTIONS (9)
  - Skin tightness [Not Recovered/Not Resolved]
  - Feeling abnormal [Unknown]
  - Pruritus [Not Recovered/Not Resolved]
  - Skin fissures [Not Recovered/Not Resolved]
  - Application site vesicles [Unknown]
  - Skin disorder [Not Recovered/Not Resolved]
  - Pain [Unknown]
  - Application site irritation [Unknown]
  - Application site erythema [Unknown]
